FAERS Safety Report 14619014 (Version 3)
Quarter: 2018Q2

REPORT INFORMATION
  Report Type: Report from Study
  Country: CA (occurrence: CA)
  Receive Date: 20180309
  Receipt Date: 20180608
  Transmission Date: 20180711
  Serious: Yes (Life-Threatening, Hospitalization, Other)
  Sender: FDA-Public Use
  Company Number: CA-TEVA-2018-CA-866522

PATIENT
  Age: 48 Year
  Sex: Female
  Weight: 62.06 kg

DRUGS (5)
  1. IRBESARTAN. [Suspect]
     Active Substance: IRBESARTAN
     Indication: CHRONIC KIDNEY DISEASE
     Dosage: 75 MILLIGRAM DAILY;
     Route: 048
     Dates: start: 20171110, end: 20180211
  2. IRBESARTAN. [Suspect]
     Active Substance: IRBESARTAN
     Indication: HYPERTENSION
  3. VENLAFAXINE [Concomitant]
     Active Substance: VENLAFAXINE HYDROCHLORIDE
     Dates: start: 2016, end: 20180211
  4. BETAHISTINE [Concomitant]
     Active Substance: BETAHISTINE
     Dates: start: 20171218, end: 20180211
  5. IRBESARTAN. [Suspect]
     Active Substance: IRBESARTAN
     Indication: PROTEINURIA

REACTIONS (17)
  - Pyrexia [Recovered/Resolved]
  - Myalgia [Unknown]
  - Hypoperfusion [Recovering/Resolving]
  - Bacterial sepsis [Recovered/Resolved]
  - Vomiting [Recovered/Resolved]
  - Hypervolaemia [Recovering/Resolving]
  - Frequent bowel movements [Unknown]
  - End stage renal disease [Recovering/Resolving]
  - Pyelonephritis [Unknown]
  - Abdominal pain [Unknown]
  - Diarrhoea [Unknown]
  - Hypotension [Recovered/Resolved]
  - Rash [Unknown]
  - Weight decreased [Unknown]
  - White blood cell count increased [Recovered/Resolved]
  - Fatigue [Unknown]
  - Back pain [Unknown]

NARRATIVE: CASE EVENT DATE: 2018
